FAERS Safety Report 6376688-5 (Version None)
Quarter: 2009Q3

REPORT INFORMATION
  Report Type: 
  Country: None (occurrence: None)
  Receive Date: 20090925
  Receipt Date: 20090915
  Transmission Date: 20100115
  Serious: No
  Sender: FDA-Public Use
  Company Number: BR-ROCHE-657146

PATIENT
  Age: 24 Year
  Sex: Female
  Weight: 70 kg

DRUGS (1)
  1. ROACUTAN [Suspect]
     Indication: DRUG USE FOR UNKNOWN INDICATION
     Route: 048
     Dates: start: 20090601, end: 20090914

REACTIONS (2)
  - NO ADVERSE EVENT [None]
  - PREGNANCY [None]
